FAERS Safety Report 13092785 (Version 1)
Quarter: 2017Q1

REPORT INFORMATION
  Report Type: Spontaneous
  Country: US (occurrence: US)
  Receive Date: 20170106
  Receipt Date: 20170106
  Transmission Date: 20170428
  Serious: No
  Sender: FDA-Public Use
  Company Number: US-JNJFOC-20161222250

PATIENT
  Age: 84 Year
  Sex: Female
  Weight: 68.04 kg

DRUGS (2)
  1. TYLENOL REGULAR STRENGTH [Suspect]
     Active Substance: ACETAMINOPHEN
     Indication: FRACTURE PAIN
     Dosage: ONE DAILY AS NEEDED
     Route: 048
     Dates: end: 20161223
  2. TYLENOL REGULAR STRENGTH [Suspect]
     Active Substance: ACETAMINOPHEN
     Indication: ARTHRALGIA
     Dosage: ONE DAILY AS NEEDED
     Route: 048
     Dates: end: 20161223

REACTIONS (2)
  - Product label issue [Unknown]
  - Frequent bowel movements [Not Recovered/Not Resolved]
